FAERS Safety Report 13917218 (Version 1)
Quarter: 2017Q3

REPORT INFORMATION
  Report Type: Spontaneous
  Country: US (occurrence: US)
  Receive Date: 20170829
  Receipt Date: 20170829
  Transmission Date: 20171127
  Serious: No
  Sender: FDA-Public Use
  Company Number: US-ALLERGAN-1721557US

PATIENT
  Sex: Female

DRUGS (1)
  1. SAPHRIS [Suspect]
     Active Substance: ASENAPINE MALEATE
     Indication: POST-TRAUMATIC STRESS DISORDER

REACTIONS (3)
  - Medication error [Unknown]
  - Off label use [Unknown]
  - Therapeutic response unexpected [Unknown]
